FAERS Safety Report 12281832 (Version 1)
Quarter: 2016Q2

REPORT INFORMATION
  Report Type: Spontaneous
  Country: US (occurrence: None)
  Receive Date: 20160418
  Receipt Date: 20160418
  Transmission Date: 20160815
  Serious: Yes (Other)
  Sender: FDA-Public Use
  Company Number: None

PATIENT
  Age: 46 Year
  Sex: Female
  Weight: 79.38 kg

DRUGS (2)
  1. LEVOTHYROXIN [Concomitant]
     Active Substance: LEVOTHYROXINE
  2. PARAGARD T 380A [Suspect]
     Active Substance: COPPER

REACTIONS (2)
  - Drug ineffective [None]
  - Pregnancy [None]

NARRATIVE: CASE EVENT DATE: 20160413
